FAERS Safety Report 7032737-2 (Version None)
Quarter: 2010Q4

REPORT INFORMATION
  Report Type: 
  Country: None (occurrence: None)
  Receive Date: 20101007
  Receipt Date: 20100929
  Transmission Date: 20110411
  Serious: Yes (Other)
  Sender: FDA-Public Use
  Company Number: US-PURDUE-USA-2010-0046610

PATIENT
  Age: 51 Year
  Sex: Male
  Weight: 68.934 kg

DRUGS (19)
  1. OXYCONTIN [Suspect]
     Indication: COLON CANCER
     Dosage: UNK
     Dates: start: 20100801
  2. OXYCONTIN [Suspect]
     Indication: RECTAL CANCER
  3. OXYCONTIN [Suspect]
     Indication: PAIN
  4. BENADRYL [Concomitant]
     Indication: THROAT TIGHTNESS
  5. OXYCODONE HCL [Concomitant]
     Indication: BREAKTHROUGH PAIN
     Dosage: 15 MG, 5/DAY
  6. TRAZODONE HCL [Concomitant]
     Indication: INSOMNIA
     Dosage: 50 MG, NOCTE
  7. FUROSEMIDE [Concomitant]
     Indication: FLUID RETENTION
     Dosage: 20 MG, BID
  8. METHOTREXATE [Concomitant]
     Indication: ARTHRITIS
     Dosage: 1 ML, WEEKLY
     Route: 030
  9. HYDROXYCHLOROQUINE [Concomitant]
     Indication: ARTHRITIS
     Dosage: 200 MG, DAILY
  10. ASPIRIN [Concomitant]
     Indication: PRODUCT USED FOR UNKNOWN INDICATION
     Dosage: 81 MG, DAILY
  11. OMEPRAZOLE [Concomitant]
     Indication: GASTROOESOPHAGEAL REFLUX DISEASE
     Dosage: 20 MG, DAILY
  12. POLYETHYLENE GLYCOL [Concomitant]
     Indication: BOWEL MOVEMENT IRREGULARITY
     Dosage: 17 G, DAILY
  13. DIAZEPAM [Concomitant]
     Indication: INSOMNIA
     Dosage: 10 MG, NOCTE
  14. PREDNISONE [Concomitant]
     Indication: SWELLING
     Dosage: 5 MG, UNK
  15. PREDNISONE [Concomitant]
     Indication: ARTHRITIS
  16. VITAMIN A [Concomitant]
     Indication: PRODUCT USED FOR UNKNOWN INDICATION
     Dosage: 50000 UNIT, WEEKLY
  17. KLOR-CON [Concomitant]
     Indication: HYPOKALAEMIA
     Dosage: 1 TABLET, DAILY
  18. ALENDRONATE SODIUM [Concomitant]
     Indication: OSTEOPOROSIS
     Dosage: 70 MG, WEEKLY
  19. ALENDRONATE SODIUM [Concomitant]
     Indication: ARTHRITIS

REACTIONS (6)
  - FATIGUE [None]
  - HEADACHE [None]
  - INSOMNIA [None]
  - MIGRAINE [None]
  - PHARYNGEAL OEDEMA [None]
  - THROAT TIGHTNESS [None]
